FAERS Safety Report 6963159-8 (Version None)
Quarter: 2010Q3

REPORT INFORMATION
  Report Type: 
  Country: None (occurrence: None)
  Receive Date: 20100902
  Receipt Date: 20100825
  Transmission Date: 20110219
  Serious: Yes (Death, Hospitalization)
  Sender: FDA-Public Use
  Company Number: IN-BAXTER-2010BH021556

PATIENT
  Age: 51 Year
  Sex: Female

DRUGS (1)
  1. DIANEAL [Suspect]
     Indication: PERITONEAL DIALYSIS
     Route: 033
     Dates: start: 20100701, end: 20100814

REACTIONS (4)
  - PERITONEAL DIALYSIS COMPLICATION [None]
  - PERITONITIS [None]
  - SEPSIS [None]
  - WRONG TECHNIQUE IN DRUG USAGE PROCESS [None]
